FAERS Safety Report 22114798 (Version 1)
Quarter: 2023Q1

REPORT INFORMATION
  Report Type: Spontaneous
  Country: US (occurrence: None)
  Receive Date: 20230317
  Receipt Date: 20230317
  Transmission Date: 20230418
  Serious: No
  Sender: FDA-Public Use
  Company Number: None

PATIENT
  Age: 82 Year
  Sex: Male

DRUGS (1)
  1. OFEV [Suspect]
     Active Substance: NINTEDANIB
     Indication: Pulmonary fibrosis
     Dosage: FREQUENCY : TWICE A DAY;?
     Route: 048
     Dates: start: 20220920, end: 20221112

REACTIONS (5)
  - Hypersomnia [None]
  - Decreased appetite [None]
  - Oligodipsia [None]
  - Dysphagia [None]
  - Immobile [None]

NARRATIVE: CASE EVENT DATE: 20230120
